FAERS Safety Report 9657265 (Version 2)
Quarter: 2013Q4

REPORT INFORMATION
  Report Type: Report from Study
  Country: US (occurrence: US)
  Receive Date: 20131030
  Receipt Date: 20131210
  Transmission Date: 20140711
  Serious: Yes (Hospitalization)
  Sender: FDA-Public Use
  Company Number: US-US-EMD SERONO, INC.-7245565

PATIENT
  Sex: Female

DRUGS (1)
  1. REBIF [Suspect]
     Indication: PRODUCT USED FOR UNKNOWN INDICATION
     Route: 058
     Dates: start: 20030609

REACTIONS (6)
  - Rectal haemorrhage [Recovering/Resolving]
  - Colitis [Unknown]
  - Diverticulum [Unknown]
  - Gastrointestinal motility disorder [Not Recovered/Not Resolved]
  - Injection site pain [Unknown]
  - Injection site induration [Unknown]
